FAERS Safety Report 14378981 (Version 2)
Quarter: 2018Q1

REPORT INFORMATION
  Report Type: Spontaneous
  Country: FR (occurrence: FR)
  Receive Date: 20180112
  Receipt Date: 20180125
  Transmission Date: 20180509
  Serious: Yes (Death)
  Sender: FDA-Public Use
  Company Number: FR-AUROBINDO-AUR-APL-2017-48457

PATIENT
  Sex: Male

DRUGS (16)
  1. METHOTREXATE SODIUM. [Suspect]
     Active Substance: METHOTREXATE SODIUM
     Indication: OSTEOSARCOMA
     Dosage: 1200 MG/M2, ONCE A DAY
     Route: 065
  2. IFOSFAMIDE. [Suspect]
     Active Substance: IFOSFAMIDE
     Dosage: OVER 3 H IN 250-500 ML IN SALINE SERUM FOR 4 DAYS
  3. CYCLOPHOSPHAMIDE. [Suspect]
     Active Substance: CYCLOPHOSPHAMIDE
     Indication: OSTEOSARCOMA
     Dosage: UNK
  4. ZOLEDRONIC ACID [Suspect]
     Active Substance: ZOLEDRONIC ACID
     Indication: OSTEOSARCOMA
     Dosage: 10 MONTHLY INTRAVENOUS INFUSIONS DURING THE PRE AND POSTOPERATIVE TREATMENT PHASES
  5. ETOPOSIDE. [Suspect]
     Active Substance: ETOPOSIDE
     Indication: OSTEOSARCOMA
     Dosage: 75 MG/M2, ONCE A DAY
     Route: 065
  6. DOXORUBICIN POWDER FOR SOLUTION FOR INFUSION [Suspect]
     Active Substance: DOXORUBICIN
     Indication: OSTEOSARCOMA
     Dosage: 37.5 MG/M2 CYCLIC (6 M-AP POST-OPERATIVELY) () ; CYCLICAL
     Route: 065
  7. IFOSFAMIDE. [Suspect]
     Active Substance: IFOSFAMIDE
     Indication: OSTEOSARCOMA
     Dosage: 3 G/M2, CYCLIC (6 M + 2 EI PRE-OPERATIVELY) () ; CYCLICAL
     Route: 065
  8. ETOPOSIDE. [Suspect]
     Active Substance: ETOPOSIDE
     Dosage: OVER 1 H IN 250-500 ML SALINE SERUM FOR 4 DAYS
  9. LEUCOVORIN                         /00566701/ [Suspect]
     Active Substance: LEUCOVORIN
     Indication: OSTEOSARCOMA
     Dosage: 20H AFTER 15MG MTX INFUSION UP TO AT LEAST 11 DOSES EVERY 6H, OR MTX LEVEL {0.15 MM/L
     Route: 065
  10. ETOPOSIDE. [Suspect]
     Active Substance: ETOPOSIDE
     Dosage: 75 MG/M2, CYCLIC (6 M + 2 EI PRE-OPERATIVELY) () ; CYCLICAL
  11. LEUCOVORIN                         /00566701/ [Suspect]
     Active Substance: LEUCOVORIN
     Dosage: 20H AFTER 15MG MTX INFUSION UP TO AT LEAST 11 DOSES EVERY 6H, OR MTX LEVEL {0.15 MM/L
  12. MESNA. [Suspect]
     Active Substance: MESNA
     Indication: OSTEOSARCOMA
     Dosage: CONTINUOUS INFUSION FOR 4 DAYS
  13. CARBOPLATIN. [Suspect]
     Active Substance: CARBOPLATIN
     Indication: OSTEOSARCOMA
     Dosage: UNK
     Route: 065
  14. METHOTREXATE SODIUM. [Suspect]
     Active Substance: METHOTREXATE SODIUM
     Dosage: 12 G/M2 CYCLIC (6 M-AP POST-OPERATIVELY) () ; CYCLICAL
  15. METHOTREXATE SODIUM. [Suspect]
     Active Substance: METHOTREXATE SODIUM
     Dosage: 12 G/M2, CYCLIC (6 M + 2 EI PRE-OPERATIVELY) () ; CYCLICAL
  16. CISPLATIN. [Suspect]
     Active Substance: CISPLATIN
     Indication: OSTEOSARCOMA
     Dosage: OVER 4 H IN 250 ML SALINE SERUM ONCE ON?DAY TWO AFTER THE END OF DOXORUBICIN

REACTIONS (1)
  - Toxicity to various agents [Fatal]
